FAERS Safety Report 17203512 (Version 1)
Quarter: 2019Q4

REPORT INFORMATION
  Report Type: Spontaneous
  Country: CA (occurrence: CA)
  Receive Date: 20191226
  Receipt Date: 20191226
  Transmission Date: 20200122
  Serious: Yes (Hospitalization, Other)
  Sender: FDA-Public Use
  Company Number: CA-TEVA-2019-CA-1156362

PATIENT
  Age: 80 Year
  Sex: Female
  Weight: 66 kg

DRUGS (5)
  1. PREGABALIN. [Suspect]
     Active Substance: PREGABALIN
     Indication: PERIARTHRITIS
     Dosage: 25 MILLIGRAM DAILY;
     Route: 048
  2. ELTROXIN [Concomitant]
     Active Substance: LEVOTHYROXINE
  3. HCTZ [Concomitant]
     Active Substance: HYDROCHLOROTHIAZIDE
  4. CITALOPRAM [Concomitant]
     Active Substance: CITALOPRAM HYDROBROMIDE
  5. PANTOPRAZOLE [Concomitant]
     Active Substance: PANTOPRAZOLE

REACTIONS (5)
  - Exercise electrocardiogram abnormal [Recovered/Resolved]
  - Electrocardiogram ST segment depression [Recovered/Resolved]
  - Myocardial infarction [Recovered/Resolved]
  - Chest pain [Recovered/Resolved]
  - Troponin increased [Recovered/Resolved]
